FAERS Safety Report 7461999-2 (Version None)
Quarter: 2011Q2

REPORT INFORMATION
  Report Type: 
  Country: None (occurrence: None)
  Receive Date: 20110506
  Receipt Date: 20110425
  Transmission Date: 20111010
  Serious: Yes (Death)
  Sender: FDA-Public Use
  Company Number: PHHY2011US37843

PATIENT
  Sex: Female

DRUGS (6)
  1. LESCOL [Concomitant]
  2. CARBIDOPA [Concomitant]
  3. FEMARA [Concomitant]
  4. GLEEVEC [Suspect]
     Indication: CHRONIC MYELOID LEUKAEMIA
     Dosage: 100 MG, BID
     Route: 048
     Dates: start: 20110110
  5. PROPRANOLOL [Concomitant]
  6. ZESTRIL [Concomitant]

REACTIONS (1)
  - DEATH [None]
